FAERS Safety Report 16236795 (Version 1)
Quarter: 2019Q2

REPORT INFORMATION
  Report Type: Spontaneous
  Country: GB (occurrence: GB)
  Receive Date: 20190425
  Receipt Date: 20190425
  Transmission Date: 20190711
  Serious: Yes (Hospitalization)
  Sender: FDA-Public Use
  Company Number: GB-TEVA-2019-GB-1041653

PATIENT
  Age: 85 Year
  Sex: Female

DRUGS (17)
  1. GLICLAZIDE [Concomitant]
     Active Substance: GLICLAZIDE
     Dosage: REVIEWED DURING ADMISSION: STOPPED
  2. OMEPRAZOLE. [Concomitant]
     Active Substance: OMEPRAZOLE
  3. FOLIC ACID. [Concomitant]
     Active Substance: FOLIC ACID
  4. BISOPROLOL [Concomitant]
     Active Substance: BISOPROLOL
     Dosage: REVIEWED DURING ADMISSION: DOSE INCREASE BY CARDIOLOGY.
  5. PARACETAMOL [Concomitant]
     Active Substance: ACETAMINOPHEN
  6. DONEPEZIL. [Concomitant]
     Active Substance: DONEPEZIL
  7. NOVOMIX [Concomitant]
     Active Substance: INSULIN ASPART
     Dosage: REVIEWED DURING ADMISSION: CHANGED TO?LEVEMIR AS ALTERNATIVE
  8. FUROSEMIDE. [Concomitant]
     Active Substance: FUROSEMIDE
  9. LERCANIDIPINE [Concomitant]
     Active Substance: LERCANIDIPINE
  10. INSULIN [Concomitant]
     Active Substance: INSULIN NOS
     Indication: TYPE 2 DIABETES MELLITUS
  11. LATANOPROST. [Concomitant]
     Active Substance: LATANOPROST
  12. TRAZODONE [Suspect]
     Active Substance: TRAZODONE HYDROCHLORIDE
     Indication: ANXIETY
     Dosage: 100 MILLIGRAM DAILY; AT NIGHT
     Route: 048
     Dates: start: 20181201, end: 20190318
  13. SODIUM HYDROGEN CARBONATE [Concomitant]
     Active Substance: SODIUM BICARBONATE
  14. ATORVASTATIN [Concomitant]
     Active Substance: ATORVASTATIN
     Dosage: REVIEWED DURING ADMISSION: STOPPED
  15. LOSARTAN POTASSIUM. [Concomitant]
     Active Substance: LOSARTAN POTASSIUM
     Dosage: REVIEWED DURING ADMISSION: DOSE REDUCED AS PER CARDIOLOGY
  16. DOXAZOSIN [Concomitant]
     Active Substance: DOXAZOSIN\DOXAZOSIN MESYLATE
     Dosage: REVIEWED DURING ADMISSION: STOPPED
  17. SOLIFENACIN [Concomitant]
     Active Substance: SOLIFENACIN
     Dosage: REVIEWED DURING ADMISSION: STOPPED AS PATIENT?CATHETERISED

REACTIONS (1)
  - Delirium [Recovering/Resolving]

NARRATIVE: CASE EVENT DATE: 20190315
